FAERS Safety Report 25310557 (Version 1)
Quarter: 2025Q2

REPORT INFORMATION
  Report Type: Spontaneous
  Country: GB (occurrence: GB)
  Receive Date: 20250514
  Receipt Date: 20250514
  Transmission Date: 20250717
  Serious: Yes (Other)
  Sender: AUROBINDO
  Company Number: GB-MHRA-TPP14896811C8887069YC1745835779957

PATIENT
  Age: 75 Year
  Sex: Female
  Weight: 59 kg

DRUGS (20)
  1. DOXAZOSIN [Suspect]
     Active Substance: DOXAZOSIN MESYLATE
     Indication: Ill-defined disorder
     Dosage: 2 MILLIGRAM, ONCE A DAY (ONE TABLET DAILY (TO LOWER BLOOD PRESSURE))
     Route: 065
     Dates: start: 20250422
  2. Adcal [Concomitant]
     Indication: Ill-defined disorder
     Dosage: 1 DOSAGE FORM, TWO TIMES A DAY
     Route: 065
     Dates: start: 20240918
  3. ATORVASTATIN [Concomitant]
     Active Substance: ATORVASTATIN
     Indication: Ill-defined disorder
     Dosage: 1 DOSAGE FORM, ONCE A DAY
     Route: 065
     Dates: start: 20240918
  4. BIMATOPROST [Concomitant]
     Active Substance: BIMATOPROST
     Indication: Ill-defined disorder
     Route: 065
     Dates: start: 20240918
  5. CARBOCYSTEINE [Concomitant]
     Active Substance: CARBOCYSTEINE
     Indication: Ill-defined disorder
     Dosage: 2 DOSAGE FORM, TWO TIMES A DAY
     Route: 065
     Dates: start: 20240918
  6. COCODAMOL [Concomitant]
     Active Substance: ACETAMINOPHEN\CODEINE PHOSPHATE
     Indication: Ill-defined disorder
     Dosage: 2 DOSAGE FORM, FOUR TIMES/DAY
     Route: 065
     Dates: start: 20240918
  7. INDAPAMIDE [Concomitant]
     Active Substance: INDAPAMIDE
     Indication: Ill-defined disorder
     Route: 065
     Dates: start: 20240918, end: 20250131
  8. LANSOPRAZOLE [Concomitant]
     Active Substance: LANSOPRAZOLE
     Indication: Ill-defined disorder
     Route: 065
     Dates: start: 20240918
  9. LEFLUNOMIDE [Concomitant]
     Active Substance: LEFLUNOMIDE
     Indication: Ill-defined disorder
     Route: 065
     Dates: start: 20240918
  10. LETROZOLE [Concomitant]
     Active Substance: LETROZOLE
     Indication: Ill-defined disorder
     Dosage: 1 DOSAGE FORM, ONCE A DAY
     Route: 065
     Dates: start: 20240918
  11. PERINDOPRIL ERBUMINE [Concomitant]
     Active Substance: PERINDOPRIL ERBUMINE
     Indication: Ill-defined disorder
     Route: 065
     Dates: start: 20240918
  12. PRAMIPEXOLE [Concomitant]
     Active Substance: PRAMIPEXOLE
     Indication: Ill-defined disorder
     Route: 065
     Dates: start: 20240918
  13. ALBUTEROL [Concomitant]
     Active Substance: ALBUTEROL
     Indication: Ill-defined disorder
     Route: 065
     Dates: start: 20240918
  14. SULFASALAZINE [Concomitant]
     Active Substance: SULFASALAZINE
     Indication: Ill-defined disorder
     Route: 065
     Dates: start: 20240918
  15. BECLOMETHASONE DIPROPIONATE\FORMOTEROL FUMARATE\GLYCOPYRROLATE [Concomitant]
     Active Substance: BECLOMETHASONE DIPROPIONATE\FORMOTEROL FUMARATE\GLYCOPYRROLATE
     Indication: Ill-defined disorder
     Dosage: 2 DOSAGE FORM, TWO TIMES A DAY
     Route: 065
     Dates: start: 20240918
  16. COLISTIMETHATE [Concomitant]
     Active Substance: COLISTIMETHATE SODIUM
     Indication: Ill-defined disorder
     Route: 065
     Dates: start: 20250131
  17. SODIUM CHLORIDE [Concomitant]
     Active Substance: SODIUM CHLORIDE
     Indication: Ill-defined disorder
     Route: 065
     Dates: start: 20250131
  18. LERCANIDIPINE HYDROCHLORIDE [Concomitant]
     Active Substance: LERCANIDIPINE HYDROCHLORIDE
     Indication: Ill-defined disorder
     Route: 065
     Dates: start: 20250206
  19. Respi clear [Concomitant]
     Indication: Ill-defined disorder
     Route: 065
     Dates: start: 20250214
  20. BRIMONIDINE TARTRATE [Concomitant]
     Active Substance: BRIMONIDINE TARTRATE
     Indication: Ill-defined disorder
     Route: 065
     Dates: start: 20250415

REACTIONS (1)
  - Joint swelling [Recovered/Resolved]
